FAERS Safety Report 6193898-0 (Version None)
Quarter: 2009Q2

REPORT INFORMATION
  Report Type: 
  Country: None (occurrence: None)
  Receive Date: 20090518
  Receipt Date: 20090507
  Transmission Date: 20091009
  Serious: Yes (Other)
  Sender: FDA-Public Use
  Company Number: DE-PFIZER INC-2008099888

PATIENT

DRUGS (10)
  1. ZELDOX (CAPSULES) [Suspect]
     Indication: MENTAL DISORDER
  2. BISOPROLOL [Concomitant]
  3. AMLODIPINE [Concomitant]
  4. DELIX [Concomitant]
     Route: 048
  5. AAS [Concomitant]
  6. DOXAZOSIN MESYLATE [Concomitant]
  7. EUNERPAN [Concomitant]
  8. TAVOR [Concomitant]
  9. RISPERDAL [Concomitant]
  10. BETA BLOCKING AGENTS [Concomitant]

REACTIONS (1)
  - NECROSIS [None]
